FAERS Safety Report 12105416 (Version 1)
Quarter: 2016Q1

REPORT INFORMATION
  Report Type: Spontaneous
  Country: US (occurrence: None)
  Receive Date: 20160222
  Receipt Date: 20160222
  Transmission Date: 20160526
  Serious: Yes (Other)
  Sender: FDA-Public Use
  Company Number: None

PATIENT
  Age: 39 Year
  Sex: Male
  Weight: 96.16 kg

DRUGS (10)
  1. LIDOCAINE PATCHES [Concomitant]
  2. OXYCODONE [Suspect]
     Active Substance: OXYCODONE
     Indication: BACK PAIN
     Dosage: 1 PILL
     Route: 048
     Dates: start: 20160115, end: 20160210
  3. LIDOCAINE PATCHES 5% MYLAN [Concomitant]
     Active Substance: LIDOCAINE
     Dosage: UP TO 3 AT A TIME, APPLIED TO A SURFACE, USUALLY THE SKIN
     Dates: start: 20160121
  4. GAMBAPATIN [Concomitant]
  5. OXYCODONE [Suspect]
     Active Substance: OXYCODONE
     Indication: PAIN
     Dosage: 1 PILL
     Route: 048
     Dates: start: 20160115, end: 20160210
  6. OXYCODONE [Suspect]
     Active Substance: OXYCODONE
     Indication: NECK PAIN
     Dosage: 1 PILL
     Route: 048
     Dates: start: 20160115, end: 20160210
  7. MOBIC [Concomitant]
     Active Substance: MELOXICAM
  8. OXYCODONE [Suspect]
     Active Substance: OXYCODONE
     Indication: MUSCULOSKELETAL PAIN
     Dosage: 1 PILL
     Route: 048
     Dates: start: 20160115, end: 20160210
  9. NONI JUICE MENS ESSENTIAL VITAMINS [Concomitant]
  10. TOPAMAX [Concomitant]
     Active Substance: TOPIRAMATE

REACTIONS (4)
  - Underdose [None]
  - Drug ineffective [None]
  - Product formulation issue [None]
  - Product quality issue [None]

NARRATIVE: CASE EVENT DATE: 20160116
